FAERS Safety Report 5527609-6 (Version None)
Quarter: 2007Q4

REPORT INFORMATION
  Report Type: 
  Country: None (occurrence: None)
  Receive Date: 20071128
  Receipt Date: 20071120
  Transmission Date: 20080405
  Serious: Yes (Death)
  Sender: FDA-Public Use
  Company Number: DK-ASTRAZENECA-2007SE03436

PATIENT
  Age: 59 Year
  Sex: Female

DRUGS (3)
  1. SEROQUEL [Suspect]
     Route: 048
  2. RIVOTRIL [Concomitant]
     Dosage: 4-6 MG DAILY
  3. ZOLOFT [Concomitant]

REACTIONS (1)
  - DEATH [None]
